FAERS Safety Report 25798851 (Version 2)
Quarter: 2025Q3

REPORT INFORMATION
  Report Type: Spontaneous
  Country: IN (occurrence: IN)
  Receive Date: 20250913
  Receipt Date: 20250929
  Transmission Date: 20251020
  Serious: Yes (Hospitalization, Other)
  Sender: MSN LABORATORIES PRIVATE LIMITED
  Company Number: IN-MSNLABS-2025MSNLIT02630

PATIENT

DRUGS (4)
  1. PREGABALIN [Suspect]
     Active Substance: PREGABALIN
     Indication: Seizure
     Route: 048
  2. PREGABALIN [Suspect]
     Active Substance: PREGABALIN
     Indication: Pain
     Dosage: 100 CAPSULES
     Route: 048
  3. PREGABALIN [Suspect]
     Active Substance: PREGABALIN
     Indication: Sleep disorder
  4. TRAMADOL [Concomitant]
     Active Substance: TRAMADOL
     Indication: Product used for unknown indication
     Route: 048

REACTIONS (15)
  - Social avoidant behaviour [Recovered/Resolved]
  - Irritability [Recovered/Resolved]
  - Intentional product misuse [Unknown]
  - Gastrointestinal disorder [Recovered/Resolved]
  - Dyspnoea [Recovered/Resolved]
  - Weight increased [Recovered/Resolved]
  - Intentional overdose [Unknown]
  - Hypoaesthesia [Recovered/Resolved]
  - Asthenia [Recovered/Resolved]
  - Confusional state [Recovered/Resolved]
  - Generalised oedema [Recovered/Resolved]
  - Drug dependence [Unknown]
  - Withdrawal syndrome [Recovered/Resolved]
  - Drug withdrawal headache [Recovered/Resolved]
  - Product use in unapproved indication [Unknown]
